FAERS Safety Report 19140837 (Version 1)
Quarter: 2021Q2

REPORT INFORMATION
  Report Type: Spontaneous
  Country: US (occurrence: US)
  Receive Date: 20210415
  Receipt Date: 20210415
  Transmission Date: 20210717
  Serious: No
  Sender: FDA-Public Use
  Company Number: US-TERSERA THERAPEUTICS LLC-2021TRS000618

PATIENT

DRUGS (1)
  1. XERMELO [Suspect]
     Active Substance: TELOTRISTAT ETHYL
     Indication: CARCINOID SYNDROME
     Dosage: 250 MG, PRN (ON DAYS WITH 4 OR MORE BM)
     Route: 065
     Dates: start: 20210204

REACTIONS (2)
  - Faeces hard [Recovered/Resolved]
  - Inappropriate schedule of product administration [Unknown]
